FAERS Safety Report 21202015 (Version 1)
Quarter: 2022Q3

REPORT INFORMATION
  Report Type: Spontaneous
  Country: US (occurrence: US)
  Receive Date: 20220811
  Receipt Date: 20220811
  Transmission Date: 20221026
  Serious: Yes (Other)
  Sender: FDA-Public Use
  Company Number: US-JNJFOC-20220820363

PATIENT
  Sex: Male

DRUGS (2)
  1. TOPAMAX [Suspect]
     Active Substance: TOPIRAMATE
     Indication: Product used for unknown indication
     Route: 048
  2. BOTOX [Concomitant]
     Active Substance: ONABOTULINUMTOXINA

REACTIONS (1)
  - Nephrolithiasis [Unknown]
